FAERS Safety Report 6418753-X (Version None)
Quarter: 2009Q4

REPORT INFORMATION
  Report Type: 
  Country: None (occurrence: None)
  Receive Date: 20091028
  Receipt Date: 20091014
  Transmission Date: 20100525
  Serious: Yes (Hospitalization)
  Sender: FDA-Public Use
  Company Number: US-MYLANLABS-2009S1017878

PATIENT
  Age: 13 Year
  Sex: Female

DRUGS (3)
  1. NICORANDIL [Suspect]
     Indication: SUICIDE ATTEMPT
     Dosage: APPROXIMATELY 600MG
     Route: 048
  2. LISINOPRIL [Suspect]
     Indication: SUICIDE ATTEMPT
     Dosage: APPROXIMATELY 160MG
     Route: 048
  3. METOCLOPRAMIDE [Concomitant]
     Indication: SUICIDE ATTEMPT
     Dosage: UNKNOWN AMOUNT
     Route: 048

REACTIONS (3)
  - ECG SIGNS OF MYOCARDIAL ISCHAEMIA [None]
  - HYPOTENSION [None]
  - OVERDOSE [None]
